FAERS Safety Report 14775464 (Version 1)
Quarter: 2018Q2

REPORT INFORMATION
  Report Type: Report from Study
  Country: JP (occurrence: JP)
  Receive Date: 20180418
  Receipt Date: 20180418
  Transmission Date: 20180711
  Serious: Yes (Death, Hospitalization, Other)
  Sender: FDA-Public Use
  Company Number: PHHY2009JP073151

PATIENT
  Age: 52 Year
  Sex: Female

DRUGS (12)
  1. FLOMOX [Concomitant]
     Active Substance: CEFCAPENE PIVOXIL HYDROCHLORIDE HYDRATE
     Indication: INFECTION PROPHYLAXIS
     Route: 048
     Dates: start: 20090728, end: 20090820
  2. ALDACTONE A [Concomitant]
     Active Substance: SPIRONOLACTONE
     Indication: ASCITES
     Route: 048
     Dates: start: 20090803, end: 20090820
  3. MARZULENE [Concomitant]
     Active Substance: SODIUM GUALENATE
     Indication: GASTRITIS PROPHYLAXIS
     Route: 048
     Dates: start: 20090728, end: 20090820
  4. XELODA [Suspect]
     Active Substance: CAPECITABINE
     Dosage: 1200 MG,
     Route: 048
     Dates: start: 20090803, end: 20090809
  5. PRIMPERAN [Concomitant]
     Active Substance: METOCLOPRAMIDE HYDROCHLORIDE
     Indication: NAUSEA
     Route: 048
     Dates: start: 20090728, end: 20090820
  6. XELODA [Suspect]
     Active Substance: CAPECITABINE
     Indication: PRODUCT USED FOR UNKNOWN INDICATION
     Dosage: 1800 MG,
     Route: 048
     Dates: start: 20090729, end: 20090802
  7. LENDORMIN [Concomitant]
     Active Substance: BROTIZOLAM
     Indication: INSOMNIA
     Route: 048
     Dates: start: 20090803, end: 20090820
  8. ALBUMINAR [Concomitant]
     Active Substance: ALBUMIN HUMAN
     Indication: HYPOALBUMINAEMIA
     Route: 051
     Dates: start: 20090728, end: 20090820
  9. TYKERB [Suspect]
     Active Substance: LAPATINIB DITOSYLATE
     Indication: BREAST CANCER
     Dosage: 1250 MG, QD
     Route: 048
     Dates: start: 20090728, end: 20090809
  10. LOXONIN [Concomitant]
     Active Substance: LOXOPROFEN SODIUM
     Indication: PROPHYLAXIS
     Route: 048
     Dates: start: 20090728, end: 20090820
  11. FUROSEMIDE. [Concomitant]
     Active Substance: FUROSEMIDE
     Indication: ASCITES
     Route: 048
     Dates: start: 20090803, end: 20090820
  12. TIENAM [Concomitant]
     Active Substance: CILASTATIN SODIUM\IMIPENEM
     Indication: INFECTION PROPHYLAXIS
     Route: 051
     Dates: start: 20090728, end: 20090820

REACTIONS (14)
  - Malignant ascites [Fatal]
  - Pleural effusion [Unknown]
  - Diarrhoea [Recovered/Resolved]
  - Disseminated intravascular coagulation [Not Recovered/Not Resolved]
  - Breast cancer [Unknown]
  - Ascites [Unknown]
  - Decreased appetite [Not Recovered/Not Resolved]
  - Electrolyte imbalance [Not Recovered/Not Resolved]
  - Hepatic function abnormal [Not Recovered/Not Resolved]
  - Peritoneal neoplasm [Unknown]
  - Malaise [Not Recovered/Not Resolved]
  - Metastases to liver [Unknown]
  - Jaundice [Unknown]
  - Malignant neoplasm progression [Unknown]

NARRATIVE: CASE EVENT DATE: 20090729
